FAERS Safety Report 26143970 (Version 1)
Quarter: 2025Q4

REPORT INFORMATION
  Report Type: Spontaneous
  Country: US (occurrence: US)
  Receive Date: 20251211
  Receipt Date: 20251211
  Transmission Date: 20260118
  Serious: No
  Sender: ABBVIE
  Company Number: US-ABBVIE-6577590

PATIENT
  Age: 25 Year
  Sex: Female
  Weight: 136 kg

DRUGS (6)
  1. VRAYLAR [Suspect]
     Active Substance: CARIPRAZINE
     Indication: Depression
     Dosage: FORM STRENGTH- 1.5 MILLIGRAM
     Route: 048
     Dates: start: 202412, end: 202506
  2. VRAYLAR [Suspect]
     Active Substance: CARIPRAZINE
     Indication: Depression
     Dosage: FORM STRENGTH- 3 MILLIGRAM
     Route: 048
     Dates: start: 202506
  3. BIMZELX [Concomitant]
     Active Substance: BIMEKIZUMAB-BKZX
     Indication: Ankylosing spondylitis
  4. HYDROXYZINE [Concomitant]
     Active Substance: HYDROXYZINE HYDROCHLORIDE
     Indication: Anxiety
  5. PROZAC [Concomitant]
     Active Substance: FLUOXETINE HYDROCHLORIDE
     Indication: Depression
  6. RINVOQ [Concomitant]
     Active Substance: UPADACITINIB
     Indication: Ankylosing spondylitis

REACTIONS (3)
  - Muscle twitching [Recovering/Resolving]
  - Tardive dyskinesia [Recovering/Resolving]
  - Depression [Not Recovered/Not Resolved]

NARRATIVE: CASE EVENT DATE: 20250601
